FAERS Safety Report 8732710 (Version 10)
Quarter: 2012Q4

REPORT INFORMATION
  Report Type: 
  Country: US (occurrence: US)
  Receive Date: 20120820
  Receipt Date: 20120928
  Transmission Date: 20130627
  Serious: Yes (Life-Threatening, Hospitalization)
  Sender: FDA-Public Use
  Company Number: US-JNJFOC-20120808282

PATIENT
  Age: 74 Year
  Sex: Female
  Weight: 56 kg

DRUGS (7)
  1. XARELTO [Suspect]
     Indication: CEREBROVASCULAR ACCIDENT PROPHYLAXIS
     Route: 048
     Dates: start: 20120602, end: 20120611
  2. XARELTO [Suspect]
     Indication: ATRIAL FIBRILLATION
     Route: 048
     Dates: start: 20120602, end: 20120611
  3. MULTAQ [Concomitant]
     Route: 048
  4. CARDIZEM CD [Concomitant]
     Route: 048
  5. LASIX [Concomitant]
     Route: 048
  6. POTASSIUM CHLORIDE [Concomitant]
     Route: 048
  7. COMBIVENT [Concomitant]
     Dosage: 2 puffs as needed
     Route: 055

REACTIONS (7)
  - Gastrointestinal haemorrhage [Recovering/Resolving]
  - Anaemia [Recovering/Resolving]
  - Haematochezia [Recovering/Resolving]
  - Dyspnoea [Recovering/Resolving]
  - Haemorrhagic arteriovenous malformation [Recovering/Resolving]
  - Diverticulum [Unknown]
  - Polypectomy [Recovering/Resolving]
